FAERS Safety Report 23754947 (Version 1)
Quarter: 2024Q2

REPORT INFORMATION
  Report Type: Spontaneous
  Country: CN (occurrence: CN)
  Receive Date: 20240418
  Receipt Date: 20240418
  Transmission Date: 20240716
  Serious: Yes (Hospitalization, Other)
  Sender: FDA-Public Use
  Company Number: CN-GLAXOSMITHKLINE-CN2024GSK048687

PATIENT

DRUGS (2)
  1. ZEJULA [Suspect]
     Active Substance: NIRAPARIB
     Indication: Ovarian cancer
     Dosage: 100 MG, QD
     Route: 048
     Dates: start: 20240311, end: 20240322
  2. BEVACIZUMAB [Suspect]
     Active Substance: BEVACIZUMAB
     Indication: Ovarian cancer
     Dosage: 700 MG,CYCLIC (EVERY 21 DAYS),INJECTION
     Route: 041
     Dates: start: 20240311, end: 20240311

REACTIONS (3)
  - Platelet count decreased [Recovering/Resolving]
  - Haematochezia [Unknown]
  - Off label use [Unknown]

NARRATIVE: CASE EVENT DATE: 20240311
